FAERS Safety Report 23341411 (Version 1)
Quarter: 2023Q4

REPORT INFORMATION
  Report Type: Spontaneous
  Country: DE (occurrence: DE)
  Receive Date: 20231227
  Receipt Date: 20231227
  Transmission Date: 20240109
  Serious: Yes (Other)
  Sender: FDA-Public Use
  Company Number: DE-BEH-2023166127

PATIENT
  Age: 3 Decade
  Sex: Female

DRUGS (5)
  1. HUMAN IMMUNOGLOBULIN G [Suspect]
     Active Substance: HUMAN IMMUNOGLOBULIN G
     Indication: Thrombocytopenia
     Dosage: 160 GRAM
     Route: 042
  2. HUMAN IMMUNOGLOBULIN G [Suspect]
     Active Substance: HUMAN IMMUNOGLOBULIN G
     Indication: Anti-platelet factor 4 antibody positive
  3. HUMAN IMMUNOGLOBULIN G [Suspect]
     Active Substance: HUMAN IMMUNOGLOBULIN G
     Indication: Immune thrombocytopenia
  4. APIXABAN [Concomitant]
     Active Substance: APIXABAN
     Dosage: 10 MILLIGRAM, BID
     Route: 065
  5. ASPIRIN [Concomitant]
     Active Substance: ASPIRIN
     Dosage: 100 MILLIGRAM, QD
     Route: 065

REACTIONS (1)
  - Therapeutic product effect incomplete [Unknown]
